FAERS Safety Report 20081590 (Version 3)
Quarter: 2021Q4

REPORT INFORMATION
  Report Type: Spontaneous
  Country: VN (occurrence: VN)
  Receive Date: 20211117
  Receipt Date: 20211121
  Transmission Date: 20220303
  Serious: Yes (Death)
  Sender: FDA-Public Use
  Company Number: VN-009507513-2111VNM004962

PATIENT
  Age: 56 Year
  Sex: Male

DRUGS (3)
  1. KEYTRUDA [Suspect]
     Active Substance: PEMBROLIZUMAB
     Dosage: 200 MG/ 3 WEEKS
     Route: 042
     Dates: start: 20211102, end: 20211103
  2. PEMETREXED [Suspect]
     Active Substance: PEMETREXED
     Dosage: 500 MILLIGRAM
  3. CISPLATIN [Suspect]
     Active Substance: CISPLATIN
     Dosage: 75 MILLIGRAM/SQ. METER

REACTIONS (2)
  - Hypotension [Fatal]
  - Abdominal pain [Unknown]

NARRATIVE: CASE EVENT DATE: 20211102
